FAERS Safety Report 25406107 (Version 1)
Quarter: 2025Q2

REPORT INFORMATION
  Report Type: Spontaneous
  Country: US (occurrence: US)
  Receive Date: 20250606
  Receipt Date: 20250606
  Transmission Date: 20250716
  Serious: Yes (Life-Threatening, Hospitalization, Other)
  Sender: STRIDES
  Company Number: US-STRIDES ARCOLAB LIMITED-2025SP006932

PATIENT
  Age: 15 Year
  Sex: Male

DRUGS (17)
  1. DOFETILIDE [Suspect]
     Active Substance: DOFETILIDE
     Indication: Atrial flutter
     Route: 065
  2. DOFETILIDE [Suspect]
     Active Substance: DOFETILIDE
     Route: 065
  3. DOFETILIDE [Suspect]
     Active Substance: DOFETILIDE
     Route: 065
  4. VERAPAMIL [Suspect]
     Active Substance: VERAPAMIL HYDROCHLORIDE
     Indication: Hypertrophic cardiomyopathy
     Route: 065
  5. PREDNISOLONE [Suspect]
     Active Substance: PREDNISOLONE
     Indication: Hyperthyroidism
     Route: 065
  6. PROPRANOLOL [Suspect]
     Active Substance: PROPRANOLOL HYDROCHLORIDE
     Indication: Hypertrophic cardiomyopathy
     Route: 065
  7. METOPROLOL TARTRATE [Suspect]
     Active Substance: METOPROLOL TARTRATE
     Indication: Atrial flutter
     Route: 065
  8. PROPYLTHIOURACIL [Suspect]
     Active Substance: PROPYLTHIOURACIL
     Indication: Hyperthyroidism
     Route: 065
  9. METHIMAZOLE [Suspect]
     Active Substance: METHIMAZOLE
     Indication: Hyperthyroidism
     Route: 065
  10. AMIODARONE [Concomitant]
     Active Substance: AMIODARONE
     Indication: Atrial flutter
     Route: 048
  11. AMIODARONE [Concomitant]
     Active Substance: AMIODARONE
     Route: 048
  12. AMIODARONE [Concomitant]
     Active Substance: AMIODARONE
     Route: 042
  13. AMIODARONE [Concomitant]
     Active Substance: AMIODARONE
     Route: 042
  14. AMIODARONE [Concomitant]
     Active Substance: AMIODARONE
     Route: 048
  15. AMIODARONE [Concomitant]
     Active Substance: AMIODARONE
     Route: 048
  16. ADENOSINE [Concomitant]
     Active Substance: ADENOSINE
     Indication: Atrial flutter
     Route: 040
  17. OMAVELOXOLONE [Concomitant]
     Active Substance: OMAVELOXOLONE
     Indication: Friedreich^s ataxia
     Route: 065

REACTIONS (8)
  - Cardiogenic shock [Unknown]
  - Arrhythmia [Unknown]
  - Haemodynamic instability [Unknown]
  - Ventricular tachycardia [Unknown]
  - Therapy non-responder [Unknown]
  - Drug ineffective for unapproved indication [Unknown]
  - Drug ineffective [Unknown]
  - Off label use [Unknown]
